FAERS Safety Report 18971608 (Version 1)
Quarter: 2021Q1

REPORT INFORMATION
  Report Type: Spontaneous
  Country: US (occurrence: US)
  Receive Date: 20210304
  Receipt Date: 20210304
  Transmission Date: 20210420
  Serious: Yes (Hospitalization)
  Sender: FDA-Public Use
  Company Number: US-SUN PHARMACEUTICAL INDUSTRIES LTD-2021R1-281997

PATIENT
  Age: 66 Year
  Sex: Male

DRUGS (3)
  1. CARBIDOPA AND LEVODOPA [Suspect]
     Active Substance: CARBIDOPA\LEVODOPA
     Indication: PARKINSONISM
     Dosage: 25/250 MG EVERY 8 HOURS
     Route: 065
  2. CARBIDOPA AND LEVODOPA [Suspect]
     Active Substance: CARBIDOPA\LEVODOPA
     Dosage: 25/200 MG  TWICE DAILY
     Route: 048
  3. CARBIDOPA AND LEVODOPA [Suspect]
     Active Substance: CARBIDOPA\LEVODOPA
     Indication: ENCEPHALITIS LETHARGICA
     Dosage: 25/100 MG EVERY 8 HOURS
     Route: 065

REACTIONS (2)
  - Therapy cessation [Unknown]
  - Symptom recurrence [Recovered/Resolved]
